FAERS Safety Report 15751135 (Version 1)
Quarter: 2018Q4

REPORT INFORMATION
  Report Type: Spontaneous
  Country: US (occurrence: US)
  Receive Date: 20181221
  Receipt Date: 20181221
  Transmission Date: 20190205
  Serious: No
  Sender: FDA-Public Use
  Company Number: US-THERAPEUTICSMD-2018TMD00176

PATIENT
  Age: 59 Year
  Sex: Female
  Weight: 69.39 kg

DRUGS (7)
  1. IMVEXXY [Suspect]
     Active Substance: ESTRADIOL
     Indication: URINARY INCONTINENCE
     Dosage: 10 ?G, EVERY 48 HOURS
     Route: 067
     Dates: start: 20180920
  2. IMVEXXY [Suspect]
     Active Substance: ESTRADIOL
     Indication: VULVOVAGINAL BURNING SENSATION
     Dosage: 10 ?G, 1X/DAY BEFORE BED
     Route: 067
     Dates: start: 20180912, end: 20180913
  3. UNSPECIFIED VITAMINS [Concomitant]
     Active Substance: VITAMINS
  4. UNSPECIFIED SUPPLEMENTS FOR HEART DISEASE [Concomitant]
  5. ASPIRIN. [Concomitant]
     Active Substance: ASPIRIN
     Dosage: 81 MG, 1X/DAY AT BEDTIME
  6. VITAMIN B12 [Concomitant]
     Active Substance: CYANOCOBALAMIN
     Dosage: UNK, 1X/DAY
  7. VITAMIN D [Concomitant]
     Active Substance: CHOLECALCIFEROL
     Dosage: 5000 UNK, 1X/DAY

REACTIONS (9)
  - Mood altered [Recovered/Resolved]
  - Hot flush [Recovered/Resolved]
  - Chills [Recovered/Resolved]
  - Headache [Recovered/Resolved]
  - Anxiety [Recovered/Resolved]
  - Nausea [Recovered/Resolved]
  - Irritability [Recovered/Resolved]
  - Vulvovaginal discomfort [Not Recovered/Not Resolved]
  - Depressed mood [Recovered/Resolved]

NARRATIVE: CASE EVENT DATE: 201809
